FAERS Safety Report 7594214-X (Version None)
Quarter: 2011Q3

REPORT INFORMATION
  Report Type: 
  Country: None (occurrence: None)
  Receive Date: 20110706
  Receipt Date: 20110701
  Transmission Date: 20111222
  Serious: Yes (Other)
  Sender: FDA-Public Use
  Company Number: US-GILEAD-2011-0037670

PATIENT
  Sex: Female

DRUGS (6)
  1. LETAIRIS [Suspect]
     Indication: AORTIC VALVE DISEASE
  2. LETAIRIS [Suspect]
     Indication: RADIATION INJURY
  3. LETAIRIS [Suspect]
     Indication: PULMONARY HYPERTENSION
     Route: 048
     Dates: start: 20100212, end: 20110318
  4. LETAIRIS [Suspect]
     Indication: ADVERSE DRUG REACTION
  5. LETAIRIS [Suspect]
     Indication: SLEEP APNOEA SYNDROME
  6. LETAIRIS [Suspect]
     Indication: AORTIC DISORDER

REACTIONS (3)
  - PULMONARY OEDEMA [None]
  - CARDIAC FAILURE CONGESTIVE [None]
  - DRUG INEFFECTIVE [None]
